FAERS Safety Report 4853794-5 (Version None)
Quarter: 2005Q4

REPORT INFORMATION
  Report Type: 
  Country: None (occurrence: None)
  Receive Date: 20051212
  Receipt Date: 20051129
  Transmission Date: 20060501
  Serious: Yes (Other)
  Sender: FDA-Public Use
  Company Number: 2005162906

PATIENT
  Age: 72 Year
  Sex: Female
  Weight: 74.8435 kg

DRUGS (7)
  1. NORVASC [Suspect]
     Indication: HYPERTENSION
     Dosage: 5 MG (5 MG, DAILY, INTERVAL: EVERY DAY), ORAL
     Route: 048
     Dates: start: 20020101
  2. CITRACAL + D (CALCIUM CITRATE, ERGOCALCIFEROL) [Suspect]
     Indication: OSTEOPENIA
     Dosage: 400 MG (400 MG, DAILY, INTERVAL: EVERY OTHER DAY), ORAL
     Route: 048
     Dates: start: 20051121, end: 20051124
  3. CIPROFLOXACIN [Suspect]
     Indication: URINARY TRACT INFECTION
     Dosage: 500 MG (500 MG, DAILY, INTERVAL: EVERY DAY), ORAL
     Route: 048
     Dates: start: 20051124, end: 20051126
  4. PULMICORT [Concomitant]
  5. ALBUTEROL [Concomitant]
  6. PATANOL [Concomitant]
  7. ALLERGY MEDICATION (ALLERGY MEDICATION) [Concomitant]

REACTIONS (13)
  - ABDOMINAL PAIN UPPER [None]
  - ANURIA [None]
  - CONSTIPATION [None]
  - COUGH [None]
  - DIZZINESS [None]
  - DRUG INTERACTION [None]
  - JOINT SWELLING [None]
  - MUSCLE SPASMS [None]
  - PRURITUS [None]
  - RHINORRHOEA [None]
  - SNEEZING [None]
  - TREATMENT NONCOMPLIANCE [None]
  - URINARY TRACT INFECTION [None]
